FAERS Safety Report 25950101 (Version 1)
Quarter: 2025Q4

REPORT INFORMATION
  Report Type: Spontaneous
  Country: JP (occurrence: JP)
  Receive Date: 20251022
  Receipt Date: 20251022
  Transmission Date: 20260118
  Serious: Yes (Other)
  Sender: MERCK SHARP & DOHME LLC
  Company Number: JP-009507513-2341411

PATIENT
  Age: 71 Year
  Sex: Female

DRUGS (2)
  1. PEMBROLIZUMAB [Suspect]
     Active Substance: PEMBROLIZUMAB
     Indication: Cervix carcinoma
     Dosage: 200 MG EVERY 3 WEEKS
  2. CISPLATIN [Suspect]
     Active Substance: CISPLATIN
     Indication: Cervix carcinoma
     Dosage: 40 MG, EVERY 1 WEEK

REACTIONS (6)
  - Renal impairment [Unknown]
  - Malaise [Unknown]
  - Nausea [Unknown]
  - Hypokalaemia [Unknown]
  - Hyponatraemia [Unknown]
  - Platelet disorder [Unknown]
